FAERS Safety Report 7717718-5 (Version None)
Quarter: 2011Q3

REPORT INFORMATION
  Report Type: 
  Country: None (occurrence: None)
  Receive Date: 20110830
  Receipt Date: 20110203
  Transmission Date: 20111222
  Serious: No
  Sender: FDA-Public Use
  Company Number: US-BAYER-2011-012411

PATIENT
  Sex: Female
  Weight: 90.703 kg

DRUGS (1)
  1. MIRENA [Suspect]
     Indication: CONTRACEPTION
     Dosage: 20 ?G/D, CONT
     Route: 015

REACTIONS (4)
  - OVERWEIGHT [None]
  - WEIGHT DECREASED [None]
  - OEDEMA PERIPHERAL [None]
  - HEADACHE [None]
